FAERS Safety Report 4865343-6 (Version None)
Quarter: 2005Q4

REPORT INFORMATION
  Report Type: 
  Country: None (occurrence: None)
  Receive Date: 20051223
  Receipt Date: 20051214
  Transmission Date: 20060501
  Serious: Yes (Hospitalization)
  Sender: FDA-Public Use
  Company Number: FR-BRISTOL-MYERS SQUIBB COMPANY-13218185

PATIENT
  Age: 43 Year
  Sex: Male

DRUGS (2)
  1. REYATAZ [Suspect]
     Route: 048
     Dates: start: 20050227, end: 20050321
  2. NORVIR [Suspect]
     Dates: start: 20050227, end: 20050321

REACTIONS (4)
  - HAEMOLYTIC ANAEMIA [None]
  - HEPATOSPLENOMEGALY [None]
  - LYMPHADENOPATHY [None]
  - OCULAR ICTERUS [None]
